FAERS Safety Report 16939961 (Version 1)
Quarter: 2019Q4

REPORT INFORMATION
  Report Type: Spontaneous
  Country: GB (occurrence: GB)
  Receive Date: 20191021
  Receipt Date: 20191021
  Transmission Date: 20200122
  Serious: Yes (Other)
  Sender: FDA-Public Use
  Company Number: GB-TEVA-2019-GB-1123458

PATIENT
  Age: 78 Year
  Sex: Male
  Weight: 74 kg

DRUGS (17)
  1. CLARITHROMYCIN. [Concomitant]
     Active Substance: CLARITHROMYCIN
     Dosage: TO TREAT INFECTION,2 DOSAGE FORMS
     Dates: start: 20190603, end: 20190608
  2. TAMSULOSIN HYDROCHLORIDE. [Concomitant]
     Active Substance: TAMSULOSIN HYDROCHLORIDE
     Indication: PROSTATIC DISORDER
     Dosage: BLISTER PACK,1 DOSAGE FORMS
     Dates: start: 20180625
  3. FLUTICASONE. [Concomitant]
     Active Substance: FLUTICASONE
     Dosage: PREVENTER AND OPEN AIRWAYS, 2 DOSAGE FORMS
     Dates: start: 20180625
  4. DABIGATRAN ETEXILATE [Concomitant]
     Active Substance: DABIGATRAN ETEXILATE
     Indication: ANTICOAGULANT THERAPY
     Dosage: 2 DOSAGE FORMS
     Dates: start: 20180625
  5. HYLO-FORTE [Concomitant]
     Active Substance: HYALURONATE SODIUM
     Dosage: USE 3 OR 4 TIMES DAILY. DISCARD 6 MONTHS AFTER
     Dates: start: 20190329
  6. CO-DYDRAMOL [Concomitant]
     Active Substance: ACETAMINOPHEN\DIHYDROCODEINE
     Dosage: 2 4 TIMES DAILY.2 DOSAGE FORMS
     Dates: start: 20180625, end: 20190610
  7. FINASTERIDE. [Concomitant]
     Active Substance: FINASTERIDE
     Indication: PROSTATIC DISORDER
     Dosage: BLISTER PACK, 1 DOSAGE FORMS
     Dates: start: 20180625
  8. CARBOMER 980 [Concomitant]
     Active Substance: CARBOMER HOMOPOLYMER TYPE C (ALLYL PENTAERYTHRITOL CROSSLINKED)
     Indication: DRY EYE
     Dosage: BLISTER PACK, 2 DOSAGE FORMS
     Dates: start: 20180625
  9. OMEPRAZOLE. [Concomitant]
     Active Substance: OMEPRAZOLE
     Indication: GASTROINTESTINAL DISORDER
     Dosage: BLISTER PACK, 1 DOSAGE FORMS
     Dates: start: 20180625, end: 20190523
  10. LANSOPRAZOLE. [Concomitant]
     Active Substance: LANSOPRAZOLE
     Dosage: FOR STOMACH, 1 DOSAGE FORMS
     Dates: start: 20190523
  11. SALBUTAMOL [Concomitant]
     Active Substance: ALBUTEROL
     Dosage: 2 PUFF UP TO 2 HOURLY.2 DOSAGE FORMS
     Dates: start: 20180625
  12. BISOPROLOL [Concomitant]
     Active Substance: BISOPROLOL
     Dosage: HEART BLISTER PACK, 1 DOSAGE FORMS
     Dates: start: 20180625
  13. RANITIDINE. [Concomitant]
     Active Substance: RANITIDINE
     Indication: DYSPEPSIA
     Dosage: BLISTER PACK,2 DOSAGE FORMS
     Dates: start: 20180625, end: 20190610
  14. SIMVASTATIN. [Concomitant]
     Active Substance: SIMVASTATIN
     Dosage: AT NIGHT CHOLESTEROL BLISTER PACK, 1 DOSAGE FORMS
     Dates: start: 20180625
  15. FLUCONAZOLE. [Suspect]
     Active Substance: FLUCONAZOLE
     Dosage: 1 DOSAGE FORMS
     Dates: start: 20190626, end: 20190710
  16. GAVISCON ADVANCE [Concomitant]
     Active Substance: POTASSIUM BICARBONATE\SODIUM ALGINATE
     Dosage: 5ML OR 10ML 4 TIMES/DAY
     Dates: start: 20180625
  17. LACRI-LUBE [Concomitant]
     Dosage: LOWER LID 1CM. EACH NIGHT.1 DOSAGE FORMS
     Dates: start: 20180625, end: 20190610

REACTIONS (3)
  - Skin discolouration [Unknown]
  - Urticaria [Recovered/Resolved]
  - Skin exfoliation [Unknown]

NARRATIVE: CASE EVENT DATE: 20190626
